FAERS Safety Report 5033469-2 (Version None)
Quarter: 2006Q2

REPORT INFORMATION
  Report Type: 
  Country: None (occurrence: None)
  Receive Date: 20060623
  Receipt Date: 20060616
  Transmission Date: 20061013
  Serious: Yes (Hospitalization)
  Sender: FDA-Public Use
  Company Number: 2006UW12938

PATIENT
  Age: 70 Year
  Sex: Female

DRUGS (14)
  1. CRESTOR [Suspect]
     Route: 048
     Dates: start: 20050101
  2. LEVOTHYROXINE SODIUM [Concomitant]
     Indication: THYROID DISORDER
     Route: 048
  3. OXYCONTIN [Concomitant]
     Indication: BACK PAIN
     Route: 048
  4. GABAPENTIN [Concomitant]
     Indication: PAIN
     Route: 048
  5. DURAGESIC-100 [Concomitant]
     Indication: PAIN
     Dosage: 1 PATCH Q THREE DAYS
     Route: 061
  6. MINITRAN [Concomitant]
     Dosage: PATCH ON 14 HRS/DAY
     Route: 061
  7. NORVASC [Concomitant]
     Indication: HYPERTENSION
     Route: 048
  8. BISOPROLOL [Concomitant]
     Indication: HYPERTENSION
     Route: 048
  9. COVERSYL [Concomitant]
     Indication: HYPERTENSION
     Route: 048
  10. CLONAZEPAM [Concomitant]
     Route: 048
  11. SALBUTAMOL [Concomitant]
     Route: 055
  12. PROPADERM [Concomitant]
     Route: 061
  13. LIPITOR [Concomitant]
  14. ZOCOR [Concomitant]

REACTIONS (3)
  - DYSPNOEA [None]
  - MUSCLE SPASMS [None]
  - STENT PLACEMENT [None]
